FAERS Safety Report 12450415 (Version 1)
Quarter: 2016Q2

REPORT INFORMATION
  Report Type: Spontaneous
  Country: FR (occurrence: FR)
  Receive Date: 20160609
  Receipt Date: 20160609
  Transmission Date: 20160815
  Serious: Yes (Other)
  Sender: FDA-Public Use
  Company Number: FR-ABBVIE-16K-056-1643585-00

PATIENT
  Age: 46 Year
  Sex: Female

DRUGS (3)
  1. CIMZIA [Suspect]
     Active Substance: CERTOLIZUMAB PEGOL
     Indication: ANKYLOSING SPONDYLITIS
     Dosage: LOADING DOSE WITH TWO INJECTIONS
     Route: 065
     Dates: start: 20160417
  2. ENBREL [Suspect]
     Active Substance: ETANERCEPT
     Indication: ANKYLOSING SPONDYLITIS
     Route: 065
     Dates: start: 20160313, end: 20160406
  3. HUMIRA [Suspect]
     Active Substance: ADALIMUMAB
     Indication: ANKYLOSING SPONDYLITIS
     Route: 058
     Dates: start: 201111, end: 201603

REACTIONS (9)
  - Injection site erythema [Recovered/Resolved]
  - Acne [Unknown]
  - Injection site plaque [Recovered/Resolved]
  - Serum sickness [Recovering/Resolving]
  - Injection site erythema [Unknown]
  - Injection site erythema [Unknown]
  - Angioedema [Unknown]
  - Pyrexia [Unknown]
  - Arthralgia [Recovered/Resolved]

NARRATIVE: CASE EVENT DATE: 20160313
